FAERS Safety Report 24708487 (Version 2)
Quarter: 2024Q4

REPORT INFORMATION
  Report Type: Spontaneous
  Country: JP (occurrence: JP)
  Receive Date: 20241207
  Receipt Date: 20241221
  Transmission Date: 20250114
  Serious: Yes (Life-Threatening, Hospitalization)
  Sender: TEVA
  Company Number: JP-TEVA-VS-3271602

PATIENT
  Sex: Male

DRUGS (7)
  1. SPIRONOLACTONE [Suspect]
     Active Substance: SPIRONOLACTONE
     Indication: Ascites
     Route: 065
  2. FUROSEMIDE [Suspect]
     Active Substance: FUROSEMIDE
     Indication: Ascites
     Route: 065
  3. TOLVAPTAN [Suspect]
     Active Substance: TOLVAPTAN
     Indication: Ascites
     Route: 065
  4. TOLVAPTAN [Suspect]
     Active Substance: TOLVAPTAN
     Indication: Ascites
     Route: 065
  5. DACLATASVIR [Concomitant]
     Active Substance: DACLATASVIR
     Indication: Hepatitis C
     Route: 065
  6. ASUNAPREVIR [Concomitant]
     Active Substance: ASUNAPREVIR
     Indication: Hepatitis C
     Route: 065
  7. RIBAVIRIN [Suspect]
     Active Substance: RIBAVIRIN
     Indication: Hepatitis C
     Route: 065

REACTIONS (1)
  - Drug ineffective [Unknown]
